FAERS Safety Report 20742180 (Version 2)
Quarter: 2022Q2

REPORT INFORMATION
  Report Type: Spontaneous
  Country: US (occurrence: US)
  Receive Date: 20220423
  Receipt Date: 20220605
  Transmission Date: 20220721
  Serious: Yes (Other)
  Sender: FDA-Public Use
  Company Number: US-CELLTRION INC.-2022US004868

PATIENT

DRUGS (7)
  1. INFLIXIMAB [Suspect]
     Active Substance: INFLIXIMAB
     Indication: Coeliac disease
     Dosage: MAINTENANCE DOSING FOR A TOTAL OF 9 MONTHS
     Route: 065
  2. INFLIXIMAB [Suspect]
     Active Substance: INFLIXIMAB
     Indication: Enteritis
     Dosage: UNK
     Route: 065
  3. SOLU-MEDROL [Suspect]
     Active Substance: METHYLPREDNISOLONE SODIUM SUCCINATE
     Indication: Coeliac disease
     Dosage: 20 MILLIGRAM, EVERY 12 HOURS
     Route: 042
  4. BUDESONIDE [Suspect]
     Active Substance: BUDESONIDE
     Indication: Coeliac disease
     Dosage: 3 MILLIGRAM, TID
  5. CLADRIBINE [Suspect]
     Active Substance: CLADRIBINE
     Indication: Coeliac disease
  6. XELJANZ [Suspect]
     Active Substance: TOFACITINIB CITRATE
     Indication: Coeliac disease
     Dosage: 10 MG, BID
     Route: 048
  7. XELJANZ [Suspect]
     Active Substance: TOFACITINIB CITRATE
     Dosage: 5 MILLIGRAM, BID
     Route: 048

REACTIONS (3)
  - Coeliac disease [Unknown]
  - Therapy partial responder [Unknown]
  - Off label use [Unknown]
